FAERS Safety Report 9150616 (Version 1)
Quarter: 2013Q1

REPORT INFORMATION
  Report Type: Spontaneous
  Country: FR (occurrence: FR)
  Receive Date: 20130308
  Receipt Date: 20130308
  Transmission Date: 20140127
  Serious: Yes (Hospitalization)
  Sender: FDA-Public Use
  Company Number: FR-ROCHE-1198850

PATIENT
  Age: 70 Year
  Sex: Male

DRUGS (6)
  1. ROCEPHINE [Suspect]
     Indication: PNEUMONIA ASPIRATION
     Route: 042
     Dates: start: 20130122, end: 20130201
  2. AUGMENTIN [Suspect]
     Indication: PNEUMONIA ASPIRATION
     Route: 042
     Dates: start: 20130112, end: 20130121
  3. FLAGYL [Concomitant]
     Indication: URINARY TRACT INFECTION
  4. ABILIFY [Concomitant]
     Indication: BIPOLAR I DISORDER
     Route: 048
     Dates: end: 20130123
  5. TERALITHE [Concomitant]
     Indication: BIPOLAR I DISORDER
     Route: 048
     Dates: end: 20130123
  6. PARACETAMOL [Concomitant]
     Indication: PYREXIA
     Route: 048
     Dates: start: 20130125, end: 20130128

REACTIONS (2)
  - Hepatitis [Recovered/Resolved]
  - Transaminases increased [Recovered/Resolved]
